FAERS Safety Report 9572016 (Version 2)
Quarter: 2013Q4

REPORT INFORMATION
  Report Type: Spontaneous
  Country: US (occurrence: US)
  Receive Date: 20131001
  Receipt Date: 20131001
  Transmission Date: 20140711
  Serious: No
  Sender: FDA-Public Use
  Company Number: US-PURDUE-USA-2011-0079008

PATIENT
  Age: 53 Year
  Sex: Female
  Weight: 94.33 kg

DRUGS (3)
  1. BUTRANS [Suspect]
     Indication: PAIN
     Dosage: 5 MCG, Q1H
     Route: 062
     Dates: start: 20111104, end: 20111107
  2. LORTAB                             /00607101/ [Concomitant]
     Indication: PAIN
     Dosage: 500 MG, Q1H
     Dates: start: 20110504
  3. VOLTAREN                           /00372301/ [Concomitant]
     Indication: OSTEOARTHRITIS
     Dosage: UNK
     Dates: start: 20110804

REACTIONS (1)
  - Headache [Recovered/Resolved]
